FAERS Safety Report 6108841-X (Version None)
Quarter: 2009Q1

REPORT INFORMATION
  Report Type: 
  Country: None (occurrence: None)
  Receive Date: 20090310
  Receipt Date: 20090303
  Transmission Date: 20090719
  Serious: Yes (Hospitalization)
  Sender: FDA-Public Use
  Company Number: US-BIOGENIDEC-2008BI027865

PATIENT
  Sex: Male

DRUGS (2)
  1. AVONEX [Suspect]
     Indication: MULTIPLE SCLEROSIS
     Route: 030
     Dates: start: 20080307, end: 20080101
  2. AVONEX [Suspect]
     Indication: MYELOPATHY
     Route: 030
     Dates: start: 20080307, end: 20080101

REACTIONS (3)
  - ARTHRALGIA [None]
  - CERVICOBRACHIAL SYNDROME [None]
  - MYELOPATHY [None]
